FAERS Safety Report 21771351 (Version 1)
Quarter: 2022Q4

REPORT INFORMATION
  Report Type: Spontaneous
  Country: US (occurrence: US)
  Receive Date: 20221223
  Receipt Date: 20221223
  Transmission Date: 20230112
  Serious: Yes (Hospitalization)
  Sender: FDA-Public Use
  Company Number: US-ORG100016242-2022002949

PATIENT

DRUGS (10)
  1. EXPAREL [Suspect]
     Active Substance: BUPIVACAINE
     Indication: Nerve block
  2. BUPIVACAINE [Suspect]
     Active Substance: BUPIVACAINE
     Indication: Nerve block
  3. CELECOXIB [Concomitant]
     Active Substance: CELECOXIB
     Indication: Preoperative care
     Route: 048
  4. MELOXICAM [Concomitant]
     Active Substance: MELOXICAM
     Indication: Preoperative care
     Route: 048
  5. PREGABALIN [Concomitant]
     Active Substance: PREGABALIN
     Indication: Preoperative care
     Dosage: NOT PROVIDED
  6. ACETAMINOPHEN [Concomitant]
     Active Substance: ACETAMINOPHEN
     Indication: Procedural pain
     Route: 042
  7. KETOROLAC [Concomitant]
     Active Substance: KETOROLAC TROMETHAMINE
     Indication: Procedural pain
     Route: 042
  8. KETOROLAC [Concomitant]
     Active Substance: KETOROLAC TROMETHAMINE
     Indication: Procedural pain
  9. TRAMADOL [Concomitant]
     Active Substance: TRAMADOL
     Indication: Breakthrough pain
  10. OXYCODONE [Concomitant]
     Active Substance: OXYCODONE
     Indication: Breakthrough pain
     Dosage: DIFFERENT DOSES DEPENDING OF THE PATIENT

REACTIONS (2)
  - Hospitalisation [Unknown]
  - Emergency care [Unknown]
